FAERS Safety Report 13296985 (Version 2)
Quarter: 2017Q1

REPORT INFORMATION
  Report Type: Spontaneous
  Country: FR (occurrence: FR)
  Receive Date: 20170306
  Receipt Date: 20170314
  Transmission Date: 20170428
  Serious: Yes (Life-Threatening, Other)
  Sender: FDA-Public Use
  Company Number: FR-ACCORD-048814

PATIENT
  Age: 50 Year
  Sex: Female

DRUGS (3)
  1. CISPLATIN MYLAN [Suspect]
     Active Substance: CISPLATIN
     Indication: BREAST CANCER METASTATIC
     Dosage: AT DAY 1
     Route: 042
     Dates: start: 20170104, end: 20170104
  2. CALCIUM LEVOFOLINATE [Concomitant]
     Active Substance: LEVOLEUCOVORIN CALCIUM
     Dosage: DAY 1 AND DAY 2
  3. FLUOROURACIL ACCORD [Suspect]
     Active Substance: FLUOROURACIL
     Indication: BREAST CANCER METASTATIC
     Dosage: STRENGTH: 50 MG/ML?AT DAY 1 AND DAY 2
     Route: 042
     Dates: start: 20170104, end: 20170105

REACTIONS (3)
  - Thrombocytopenia [Recovering/Resolving]
  - Neutropenia [Recovered/Resolved]
  - Hepatosplenomegaly [Unknown]

NARRATIVE: CASE EVENT DATE: 20170118
